FAERS Safety Report 21618486 (Version 1)
Quarter: 2022Q4

REPORT INFORMATION
  Report Type: Spontaneous
  Country: GB (occurrence: GB)
  Receive Date: 20221119
  Receipt Date: 20221119
  Transmission Date: 20230113
  Serious: Yes (Death, Life-Threatening)
  Sender: FDA-Public Use
  Company Number: GB-MHRA-MED-202211020933119140-NDJQM

PATIENT
  Age: 47 Year
  Sex: Male

DRUGS (4)
  1. PALIPERIDONE [Suspect]
     Active Substance: PALIPERIDONE
     Indication: Product used for unknown indication
     Dosage: 100 MG DEPOT INJECTION EACH MONTH; ;
     Route: 065
  2. CHOLECALCIFEROL [Concomitant]
     Active Substance: CHOLECALCIFEROL
  3. IBUPROFEN [Concomitant]
     Active Substance: IBUPROFEN
  4. PROCYCLIDINE [Concomitant]
     Active Substance: PROCYCLIDINE

REACTIONS (2)
  - Death [Fatal]
  - Medication error [Unknown]

NARRATIVE: CASE EVENT DATE: 20171102
